FAERS Safety Report 26199470 (Version 1)
Quarter: 2025Q4

REPORT INFORMATION
  Report Type: Spontaneous
  Country: EU (occurrence: EU)
  Receive Date: 20251225
  Receipt Date: 20251225
  Transmission Date: 20260117
  Serious: Yes (Other)
  Sender: AMGEN
  Company Number: EU-PFIZER INC-PV202500145547

PATIENT
  Age: 73 Year
  Sex: Female

DRUGS (3)
  1. DENOSUMAB [Suspect]
     Active Substance: DENOSUMAB
     Indication: Product used for unknown indication
     Dosage: 120 MG, CYCLIC(120 MG SC EVERY 28 DAYS )
     Route: 058
  2. PALBOCICLIB [Suspect]
     Active Substance: PALBOCICLIB
     Indication: Breast cancer stage IV
     Dosage: 125 MG, CYCLIC (1 CAPSULE/DAY 21 DAYS/7 DAYS BREAK )
     Route: 065
     Dates: start: 202301
  3. LETROZOLE [Suspect]
     Active Substance: LETROZOLE
     Indication: Breast cancer stage IV
     Dosage: 2.5 MG, DAILY(1 CAPSULE/DAY PERMANENTLY)
     Route: 065
     Dates: start: 202301

REACTIONS (2)
  - Neutropenia [Unknown]
  - Asthenia [Unknown]
